FAERS Safety Report 5945791-3 (Version None)
Quarter: 2008Q4

REPORT INFORMATION
  Report Type: 
  Country: None (occurrence: None)
  Receive Date: 20081106
  Receipt Date: 20081031
  Transmission Date: 20090506
  Serious: Yes (Hospitalization, Other)
  Sender: FDA-Public Use
  Company Number: 2008AL011499

PATIENT
  Age: 59 Year
  Sex: Male

DRUGS (6)
  1. SPIRONOLACTONE [Suspect]
     Indication: CARDIAC FAILURE CONGESTIVE
     Dosage: 25 MG; BID; PO
     Route: 048
     Dates: start: 20081008, end: 20081020
  2. LASIX [Concomitant]
  3. DIGITEK [Concomitant]
  4. ALTACE [Concomitant]
  5. COREG [Concomitant]
  6. ASPIRIN [Concomitant]

REACTIONS (4)
  - CARDIAC FAILURE CONGESTIVE [None]
  - CONDITION AGGRAVATED [None]
  - DRUG INEFFECTIVE [None]
  - HEPATIC CONGESTION [None]
